FAERS Safety Report 7416545-6 (Version None)
Quarter: 2011Q2

REPORT INFORMATION
  Report Type: 
  Country: None (occurrence: None)
  Receive Date: 20110414
  Receipt Date: 20110412
  Transmission Date: 20111010
  Serious: Yes (Hospitalization, Other)
  Sender: FDA-Public Use
  Company Number: CA-ABBOTT-11P-028-0717663-00

PATIENT
  Sex: Female

DRUGS (1)
  1. HUMIRA [Suspect]
     Indication: RHEUMATOID ARTHRITIS
     Route: 058
     Dates: start: 20060505, end: 20110331

REACTIONS (9)
  - KNEE ARTHROPLASTY [None]
  - CHOLELITHIASIS [None]
  - JOINT LOCK [None]
  - ABASIA [None]
  - ASTHENIA [None]
  - DYSPNOEA [None]
  - BONE PAIN [None]
  - PANCREATIC DISORDER [None]
  - DYSPEPSIA [None]
